FAERS Safety Report 5476609-3 (Version None)
Quarter: 2007Q4

REPORT INFORMATION
  Report Type: 
  Country: None (occurrence: None)
  Receive Date: 20071004
  Receipt Date: 20070928
  Transmission Date: 20080405
  Serious: Yes (Other)
  Sender: FDA-Public Use
  Company Number: PHRM2007FR02285

PATIENT
  Sex: Female

DRUGS (2)
  1. SECTRAL [Concomitant]
  2. TAREG [Suspect]
     Route: 048
     Dates: end: 20070901

REACTIONS (2)
  - PURPURA [None]
  - SKIN NECROSIS [None]
